FAERS Safety Report 20818059 (Version 1)
Quarter: 2022Q2

REPORT INFORMATION
  Report Type: Spontaneous
  Country: US (occurrence: US)
  Receive Date: 20220512
  Receipt Date: 20220512
  Transmission Date: 20220721
  Serious: No
  Sender: FDA-Public Use
  Company Number: US-PFIZER INC-202100986218

PATIENT
  Age: 80 Year
  Sex: Female

DRUGS (1)
  1. FUROSEMIDE [Suspect]
     Active Substance: FUROSEMIDE
     Dosage: UNK

REACTIONS (4)
  - Dyspepsia [Unknown]
  - Arthralgia [Unknown]
  - Headache [Unknown]
  - Abdominal pain upper [Unknown]
